FAERS Safety Report 4802869-5 (Version None)
Quarter: 2005Q4

REPORT INFORMATION
  Report Type: 
  Country: None (occurrence: None)
  Receive Date: 20051017
  Receipt Date: 20051017
  Transmission Date: 20060501
  Serious: Yes (Hospitalization)
  Sender: FDA-Public Use
  Company Number: None

PATIENT
  Age: 42 Year
  Sex: Male
  Weight: 78.3362 kg

DRUGS (12)
  1. BEVACIZUMAB [Suspect]
     Indication: METASTATIC GASTRIC CANCER
     Dosage: 15MG/KG IV EVERY 21 DAY
     Dates: start: 20050922
  2. OXALIPLATIN [Suspect]
     Indication: METASTATIC GASTRIC CANCER
     Dosage: 75MG/M2 IV EVERY 21 DAY
  3. DOCETAXEL [Suspect]
     Indication: METASTATIC GASTRIC CANCER
     Dosage: 70MG/M2 IV EVERY 21 DAYS
     Route: 042
  4. FENTANYL [Concomitant]
  5. OXYCODONE [Concomitant]
  6. METOCLOPROMIDE [Concomitant]
  7. METOPROLOL ELIXER [Concomitant]
  8. MILK OF MAGNESIA TAB [Concomitant]
  9. COLACE [Concomitant]
  10. ATIVAN [Concomitant]
  11. KEFLEX [Concomitant]
  12. COMPAZINE [Concomitant]

REACTIONS (4)
  - BRONCHITIS ACUTE [None]
  - HYPOTENSION [None]
  - LEUKOCYTOSIS [None]
  - MALAISE [None]
